FAERS Safety Report 5280558-3 (Version None)
Quarter: 2007Q1

REPORT INFORMATION
  Report Type: 
  Country: None (occurrence: None)
  Receive Date: 20061215
  Receipt Date: 20051123
  Transmission Date: 20070707
  Serious: Yes (Hospitalization, Other)
  Sender: FDA-Public Use
  Company Number: HQWYE725929NOV05

PATIENT
  Age: 42 Year
  Sex: Male
  Weight: 68.1 kg

DRUGS (5)
  1. EFFEXOR XR [Suspect]
     Indication: GENERALISED ANXIETY DISORDER
     Dosage: 150 MG 1X PER 1 DAY, ORAL
     Route: 048
     Dates: start: 20030101, end: 20051118
  2. BLEOMYCIN [Suspect]
     Indication: HODGKIN'S DISEASE
  3. DACARBAZINE [Suspect]
     Indication: HODGKIN'S DISEASE
  4. DOXORUBICIN HCL [Suspect]
     Indication: HODGKIN'S DISEASE
  5. VINBLASTINE SULFATE [Suspect]
     Indication: HODGKIN'S DISEASE

REACTIONS (2)
  - CEREBROVASCULAR ACCIDENT [None]
  - DRUG INTERACTION [None]
